FAERS Safety Report 18488358 (Version 1)
Quarter: 2020Q4

REPORT INFORMATION
  Report Type: Spontaneous
  Country: CN (occurrence: CN)
  Receive Date: 20201110
  Receipt Date: 20201110
  Transmission Date: 20210114
  Serious: Yes (Other)
  Sender: FDA-Public Use
  Company Number: CN-BAXTER-2020BAX022609

PATIENT
  Age: 27 Year
  Sex: Male
  Weight: 60 kg

DRUGS (10)
  1. HOLOXAN [Suspect]
     Active Substance: IFOSFAMIDE
     Indication: SYNOVIAL SARCOMA
     Dosage: HOLOXAN 3 G + 0.9% SODIUM CHLORIDE OF 1000 ML
     Route: 041
     Dates: start: 20201021, end: 20201021
  2. GLUCOSE [Suspect]
     Active Substance: DEXTROSE
     Indication: MEDICATION DILUTION
     Dosage: DOXORUBICIN HYDROCHLORIDE 20 MG + 5% GLUCOSE INJECTION 250ML
     Route: 041
     Dates: start: 20201021, end: 20201021
  3. FUROSEMIDE. [Suspect]
     Active Substance: FUROSEMIDE
     Indication: SYNOVIAL SARCOMA
     Route: 041
     Dates: start: 20201021, end: 20201021
  4. DOXORUBICIN HYDROCHLORIDE LIPOSOMAL [Suspect]
     Active Substance: DOXORUBICIN HYDROCHLORIDE
     Dosage: DOSE RE-INTRODUCTION, DOXORUBICIN HYDROCHLORIDE + 5% GLUCOSE
     Route: 041
     Dates: start: 202010
  5. FUROSEMIDE. [Suspect]
     Active Substance: FUROSEMIDE
     Dosage: DOSE RE-INTRODUCTION
     Route: 041
     Dates: start: 202010
  6. GLUCOSE [Suspect]
     Active Substance: DEXTROSE
     Dosage: DOSE RE-INTRODUCTION, DOXORUBICIN HYDROCHLORIDE + 5% GLUCOSE INJECTION
     Route: 041
     Dates: start: 202010
  7. HOLOXAN [Suspect]
     Active Substance: IFOSFAMIDE
     Dosage: DOSE RE-INTRODUCTION, HOLOXAN + 0.9% SODIUM CHLORIDE
     Route: 041
     Dates: start: 202010
  8. SODIUM CHLORIDE. [Suspect]
     Active Substance: SODIUM CHLORIDE
     Indication: MEDICATION DILUTION
     Dosage: HOLOXAN 3G + 0.9% SODIUM CHLORIDE INJECTION OF 1000ML
     Route: 041
     Dates: start: 20201021, end: 20201021
  9. SODIUM CHLORIDE. [Suspect]
     Active Substance: SODIUM CHLORIDE
     Dosage: DOSE RE-INTRODUCTION, HOLOXAN + 0.9% SODIUM CHLORIDE
     Route: 041
     Dates: start: 202010
  10. DOXORUBICIN HYDROCHLORIDE LIPOSOMAL [Suspect]
     Active Substance: DOXORUBICIN HYDROCHLORIDE
     Indication: SYNOVIAL SARCOMA
     Dosage: DOXORUBICIN HYDROCHLORIDE 20MG + 5% GLUCOSE 250ML
     Route: 041
     Dates: start: 20201021, end: 20201021

REACTIONS (6)
  - Hypotension [Recovering/Resolving]
  - Dyspnoea [Recovering/Resolving]
  - Erythema [Recovering/Resolving]
  - Chest discomfort [Recovering/Resolving]
  - Dizziness [Recovering/Resolving]
  - Sinus arrhythmia [Recovering/Resolving]

NARRATIVE: CASE EVENT DATE: 20201021
